FAERS Safety Report 9311537 (Version 2)
Quarter: 2013Q2

REPORT INFORMATION
  Report Type: Spontaneous
  Country: US (occurrence: US)
  Receive Date: 20130528
  Receipt Date: 20130605
  Transmission Date: 20140414
  Serious: Yes (Hospitalization)
  Sender: FDA-Public Use
  Company Number: US-BAXTER-2013BAX018899

PATIENT
  Sex: Male

DRUGS (4)
  1. DIANEAL PD2 (ULTRABAG) [Suspect]
     Indication: PERITONEAL DIALYSIS
     Route: 033
     Dates: start: 20120301, end: 20130422
  2. DIANEAL PD2 (ULTRABAG) [Suspect]
     Route: 033
     Dates: start: 20130513
  3. DIANEAL PD2 (ULTRABAG) [Suspect]
     Indication: PERITONEAL DIALYSIS
     Route: 033
     Dates: start: 20120301, end: 20130422
  4. DIANEAL PD2 (ULTRABAG) [Suspect]
     Route: 033
     Dates: start: 20130513

REACTIONS (1)
  - Umbilical hernia [Recovered/Resolved]
